FAERS Safety Report 5576553-7 (Version None)
Quarter: 2007Q4

REPORT INFORMATION
  Report Type: 
  Country: None (occurrence: None)
  Receive Date: 20071228
  Receipt Date: 20071010
  Transmission Date: 20080405
  Serious: No
  Sender: FDA-Public Use
  Company Number: A0663331A

PATIENT
  Age: 75 Year
  Sex: Female

DRUGS (4)
  1. FLOVENT [Suspect]
     Indication: ASTHMA
     Dosage: 2PUFF TWICE PER DAY
     Route: 055
  2. COMBIVENT [Concomitant]
  3. ALBUTEROL [Concomitant]
     Route: 055
  4. DIURETIC [Concomitant]

REACTIONS (8)
  - CANDIDIASIS [None]
  - COUGH [None]
  - DRUG INEFFECTIVE [None]
  - DYSPNOEA [None]
  - INCREASED BRONCHIAL SECRETION [None]
  - OEDEMA PERIPHERAL [None]
  - OVERDOSE [None]
  - PHARMACEUTICAL PRODUCT COMPLAINT [None]
